FAERS Safety Report 10235380 (Version 1)
Quarter: 2014Q2

REPORT INFORMATION
  Report Type: Spontaneous
  Country: US (occurrence: US)
  Receive Date: 20140613
  Receipt Date: 20140613
  Transmission Date: 20141212
  Serious: No
  Sender: FDA-Public Use
  Company Number: US-PFIZER INC-2014161567

PATIENT
  Age: 76 Year
  Sex: Male
  Weight: 90.7 kg

DRUGS (6)
  1. LYRICA [Suspect]
     Indication: NEUROPATHY PERIPHERAL
     Dosage: 50 MG, UNK
     Dates: start: 201404
  2. LYRICA [Suspect]
     Dosage: 75 MG, UNK
     Dates: start: 2014
  3. LYRICA [Suspect]
     Dosage: 175 MG, 2X/DAY
     Dates: start: 2014
  4. WARFARIN [Concomitant]
     Indication: ANTICOAGULANT THERAPY
     Dosage: UNK (5MG TWO DAYS IN A WEEK AND 7.5MG FIVE DAYS IN A WEEK)
  5. DIGOXIN [Concomitant]
     Dosage: 5 MG, DAILY
  6. LISINOPRIL [Concomitant]
     Dosage: 5 MG, DAILY

REACTIONS (4)
  - Drug ineffective [Not Recovered/Not Resolved]
  - Myalgia [Not Recovered/Not Resolved]
  - Arthralgia [Not Recovered/Not Resolved]
  - Pain in extremity [Not Recovered/Not Resolved]
